FAERS Safety Report 4505126-X (Version None)
Quarter: 2004Q4

REPORT INFORMATION
  Report Type: 
  Country: None (occurrence: None)
  Receive Date: 20041117
  Receipt Date: 20041117
  Transmission Date: 20050328
  Serious: Yes (Hospitalization)
  Sender: FDA-Public Use
  Company Number: None

PATIENT
  Age: 68 Year
  Sex: Male

DRUGS (9)
  1. IBUPROFEN [Suspect]
     Indication: PAIN
  2. TERAZOSIN HCL [Concomitant]
  3. ALENDRONATE SODIUM [Concomitant]
  4. OSCAL [Concomitant]
  5. IRBESARTAN [Concomitant]
  6. LORATADINE [Concomitant]
  7. METROPROLOL [Concomitant]
  8. OMEPRAZOLE [Concomitant]
  9. GUAIFENESIN [Concomitant]

REACTIONS (2)
  - ANAEMIA [None]
  - GASTROINTESTINAL HAEMORRHAGE [None]
